FAERS Safety Report 25531256 (Version 1)
Quarter: 2025Q3

REPORT INFORMATION
  Report Type: Spontaneous
  Country: KR (occurrence: KR)
  Receive Date: 20250708
  Receipt Date: 20250708
  Transmission Date: 20251020
  Serious: Yes (Death, Other)
  Sender: MALLINCKRODT
  Company Number: KR-MALLINCKRODT-MNK202504161

PATIENT
  Age: 2 Day
  Sex: Male
  Weight: 3 kg

DRUGS (2)
  1. NITRIC OXIDE [Suspect]
     Active Substance: NITRIC OXIDE
     Indication: Newborn persistent pulmonary hypertension
     Dates: start: 20250624, end: 20250625
  2. NITRIC OXIDE [Suspect]
     Active Substance: NITRIC OXIDE
     Dates: start: 20250625, end: 20250626

REACTIONS (3)
  - Multiple organ dysfunction syndrome [Fatal]
  - Cardiac arrest [Fatal]
  - Oxygen saturation decreased [Unknown]

NARRATIVE: CASE EVENT DATE: 20250601
